FAERS Safety Report 9415214 (Version 1)
Quarter: 2013Q3

REPORT INFORMATION
  Report Type: Spontaneous
  Country: US (occurrence: US)
  Receive Date: 20130723
  Receipt Date: 20130723
  Transmission Date: 20140515
  Serious: No
  Sender: FDA-Public Use
  Company Number: US-BAYER-2013-088986

PATIENT
  Age: 39 Year
  Sex: Female
  Weight: 53.52 kg

DRUGS (2)
  1. ALEVE TABLET [Suspect]
     Dosage: 2 DF, PRN
     Route: 048
     Dates: start: 2012
  2. ALEVE TABLET [Suspect]
     Dosage: 4 DF, ONCE
     Route: 048

REACTIONS (1)
  - Extra dose administered [None]
